FAERS Safety Report 7768700-3 (Version None)
Quarter: 2011Q3

REPORT INFORMATION
  Report Type: 
  Country: None (occurrence: None)
  Receive Date: 20110922
  Receipt Date: 20100826
  Transmission Date: 20111222
  Serious: Yes (Hospitalization)
  Sender: FDA-Public Use
  Company Number: US-ASTRAZENECA-2007UW25103

PATIENT
  Age: 37 Year
  Sex: Female
  Weight: 176.9 kg

DRUGS (30)
  1. RISPERDAL [Concomitant]
     Indication: HALLUCINATION
     Dosage: 3 TO 9 MG
     Dates: start: 20010101, end: 20030101
  2. RISPERDAL [Concomitant]
     Dates: start: 20030718
  3. ABILIFY [Concomitant]
     Route: 048
     Dates: start: 20060817
  4. BUSPAR [Concomitant]
     Dates: start: 20030728
  5. WELLBUTRIN [Concomitant]
     Route: 048
  6. ALBUTEROL [Concomitant]
     Route: 055
  7. DOXYCYCLINE [Concomitant]
     Route: 048
  8. ACTOS [Concomitant]
     Dosage: 15 MG TO 30 MG
     Dates: start: 20070104
  9. BUSPAR [Concomitant]
     Route: 048
  10. LEVAQUIN [Concomitant]
     Route: 048
  11. PREDNISONE [Concomitant]
     Route: 048
  12. ZINACEF [Concomitant]
     Route: 048
  13. LANTUS [Concomitant]
     Route: 065
     Dates: start: 20050324
  14. RISPERDAL [Concomitant]
     Route: 048
  15. ALBUTEROL [Concomitant]
     Route: 055
  16. MOTRIN [Concomitant]
     Route: 048
  17. SINGULAIR [Concomitant]
     Route: 048
  18. EFFEXOR [Concomitant]
     Route: 048
  19. TRAZODONE HCL [Concomitant]
     Dosage: 100 MG TO 150 MG
     Dates: start: 20030718
  20. TRAZODONE HCL [Concomitant]
     Route: 048
  21. SEROQUEL [Suspect]
     Indication: DEPRESSION
     Route: 048
     Dates: start: 19980101, end: 20050101
  22. SEROQUEL [Suspect]
     Route: 048
     Dates: start: 20030718
  23. DEPAKOTE [Concomitant]
     Route: 048
  24. ATIVAN [Concomitant]
     Route: 048
  25. EFFEXOR [Concomitant]
     Route: 048
     Dates: start: 20060817
  26. ATIVAN [Concomitant]
     Dates: start: 20060817
  27. ZOLOFT [Concomitant]
     Route: 048
     Dates: start: 20030728
  28. SEROQUEL [Suspect]
     Route: 048
     Dates: start: 20021121
  29. ALBUTEROL [Concomitant]
     Route: 048
  30. ZANTAC [Concomitant]
     Dosage: 15 MG TO 300 MG
     Dates: start: 20030728

REACTIONS (3)
  - TYPE 2 DIABETES MELLITUS [None]
  - DIABETIC COMPLICATION [None]
  - OBESITY [None]
